FAERS Safety Report 7283483-1 (Version None)
Quarter: 2011Q1

REPORT INFORMATION
  Report Type: 
  Country: None (occurrence: None)
  Receive Date: 20110209
  Receipt Date: 20110208
  Transmission Date: 20110831
  Serious: Yes (Life-Threatening, Hospitalization)
  Sender: FDA-Public Use
  Company Number: PHHO2010TH18751

PATIENT
  Weight: 67 kg

DRUGS (3)
  1. SANDOSTATIN [Concomitant]
  2. HUMULIN R [Concomitant]
  3. AFINITOR [Suspect]
     Indication: PANCREATIC NEUROENDOCRINE TUMOUR METASTATIC
     Dosage: 10 MG,
     Route: 048
     Dates: start: 20100819

REACTIONS (3)
  - DIARRHOEA [None]
  - ELECTROLYTE IMBALANCE [None]
  - RENAL FAILURE [None]
